FAERS Safety Report 8512852-4 (Version None)
Quarter: 2012Q3

REPORT INFORMATION
  Report Type: 
  Country: None (occurrence: None)
  Receive Date: 20120716
  Receipt Date: 20120705
  Transmission Date: 20120928
  Serious: Yes (Other)
  Sender: FDA-Public Use
  Company Number: US-ASTRAZENECA-2012SE45646

PATIENT
  Age: 54 Year
  Sex: Female
  Weight: 49.9 kg

DRUGS (4)
  1. PAIN MEDICATION [Suspect]
     Indication: BACK PAIN
     Route: 065
  2. PRISTIQ [Concomitant]
  3. TOPAMAX [Concomitant]
  4. SEROQUEL [Suspect]
     Indication: DEPRESSION
     Route: 048

REACTIONS (6)
  - BACK INJURY [None]
  - NAUSEA [None]
  - FALL [None]
  - MIGRAINE [None]
  - INTERVERTEBRAL DISC PROTRUSION [None]
  - CONFUSIONAL STATE [None]
